FAERS Safety Report 21737674 (Version 1)
Quarter: 2022Q4

REPORT INFORMATION
  Report Type: Spontaneous
  Country: FR (occurrence: FR)
  Receive Date: 20221216
  Receipt Date: 20221216
  Transmission Date: 20230113
  Serious: Yes (Hospitalization)
  Sender: FDA-Public Use
  Company Number: FR-AFSSAPS-CN20222025

PATIENT
  Age: 64 Year
  Sex: Male

DRUGS (2)
  1. FLUCONAZOLE [Suspect]
     Active Substance: FLUCONAZOLE
     Indication: Candida infection
     Dosage: 400 MILLIGRAM, ONCE A DAY(FLUCONAZOLE PER OS 400 MG PAR JOUR TOUS LES JOURS)
     Route: 048
     Dates: start: 20220601, end: 20220824
  2. FLUCONAZOLE [Suspect]
     Active Substance: FLUCONAZOLE
     Dosage: 600 MILLIGRAM, ONCE A DAY(FLUCONAZOLE I.V 600 MG TOUS LES JOURS)
     Route: 042
     Dates: start: 20220427, end: 20220525

REACTIONS (1)
  - Hypercalcaemia [Recovering/Resolving]

NARRATIVE: CASE EVENT DATE: 20220518
